FAERS Safety Report 4678933-0 (Version None)
Quarter: 2005Q2

REPORT INFORMATION
  Report Type: 
  Country: None (occurrence: None)
  Receive Date: 20050531
  Receipt Date: 20050518
  Transmission Date: 20051028
  Serious: Yes (Death)
  Sender: FDA-Public Use
  Company Number: 2005076992

PATIENT

DRUGS (2)
  1. CELEBREX [Suspect]
     Indication: INFLAMMATION
     Dates: start: 19990101, end: 20041001
  2. CELEBREX [Suspect]
     Indication: PAIN IN EXTREMITY
     Dates: start: 19990101, end: 20041001

REACTIONS (1)
  - ACUTE MYOCARDIAL INFARCTION [None]
